FAERS Safety Report 12806261 (Version 6)
Quarter: 2018Q4

REPORT INFORMATION
  Report Type: Spontaneous
  Country: US (occurrence: US)
  Receive Date: 20161004
  Receipt Date: 20181110
  Transmission Date: 20190204
  Serious: Yes (Other)
  Sender: FDA-Public Use
  Company Number: PHHY2016US136427

PATIENT
  Sex: Female
  Weight: 96.15 kg

DRUGS (2)
  1. ZOFRAN [Suspect]
     Active Substance: ONDANSETRON HYDROCHLORIDE
     Indication: MORNING SICKNESS
     Dosage: 1 DF, Q6H
     Route: 048
     Dates: start: 20130717, end: 20131231
  2. ZOFRAN ODT [Suspect]
     Active Substance: ONDANSETRON HYDROCHLORIDE
     Indication: MORNING SICKNESS
     Dosage: 4 MG, TID
     Route: 048

REACTIONS (9)
  - Placental insufficiency [Unknown]
  - Tachycardia [Unknown]
  - Gestational diabetes [Unknown]
  - Product use in unapproved indication [Unknown]
  - Vaginal haemorrhage [Unknown]
  - Thyroid dysfunction in pregnancy [Unknown]
  - Toothache [Unknown]
  - Maternal exposure during pregnancy [Unknown]
  - Pain in extremity [Unknown]
